FAERS Safety Report 17877443 (Version 1)
Quarter: 2020Q2

REPORT INFORMATION
  Report Type: Spontaneous
  Country: CA (occurrence: CA)
  Receive Date: 20200609
  Receipt Date: 20200609
  Transmission Date: 20200714
  Serious: Yes (Other)
  Sender: FDA-Public Use
  Company Number: NVSC2020CA158417

PATIENT

DRUGS (1)
  1. DABRAFENIB [Suspect]
     Active Substance: DABRAFENIB
     Indication: ASTROCYTOMA
     Dosage: 150 MG, BID
     Route: 065

REACTIONS (3)
  - Product use in unapproved indication [Unknown]
  - Contusion [Unknown]
  - Gastrointestinal haemorrhage [Unknown]
